FAERS Safety Report 19446323 (Version 1)
Quarter: 2021Q2

REPORT INFORMATION
  Report Type: Spontaneous
  Country: US (occurrence: US)
  Receive Date: 20210622
  Receipt Date: 20210622
  Transmission Date: 20210717
  Serious: Yes (Other)
  Sender: FDA-Public Use
  Company Number: US-KVK-TECH, INC-20210600072

PATIENT
  Age: 60 Year
  Sex: Male

DRUGS (3)
  1. OXYBUTYNIN CHLORIDE UNSPECIFIED [Suspect]
     Active Substance: OXYBUTYNIN CHLORIDE
     Indication: PRODUCT USED FOR UNKNOWN INDICATION
     Dosage: UNK, QD
  2. MYRBETRIQ [Suspect]
     Active Substance: MIRABEGRON
     Indication: BLADDER SPASM
  3. MYRBETRIQ [Suspect]
     Active Substance: MIRABEGRON
     Indication: HYPERTONIC BLADDER
     Dosage: 25 MILLIGRAM, QD
     Dates: start: 202104

REACTIONS (2)
  - Incontinence [Unknown]
  - COVID-19 [Unknown]

NARRATIVE: CASE EVENT DATE: 20200903
